FAERS Safety Report 10216792 (Version 3)
Quarter: 2014Q2

REPORT INFORMATION
  Report Type: Spontaneous
  Country: GB (occurrence: GB)
  Receive Date: 20140604
  Receipt Date: 20140625
  Transmission Date: 20141212
  Serious: Yes (Other)
  Sender: FDA-Public Use
  Company Number: GB-GE HEALTHCARE MEDICAL DIAGNOSTICS-VISP-PR-1405S-0240

PATIENT
  Age: 79 Year
  Sex: Female

DRUGS (2)
  1. VISIPAQUE [Suspect]
     Indication: MYOCARDIAL INFARCTION
     Route: 013
     Dates: start: 20140519, end: 20140519
  2. VISIPAQUE [Suspect]
     Indication: THERAPEUTIC PROCEDURE

REACTIONS (2)
  - Urticaria [Recovered/Resolved]
  - Blister [Recovering/Resolving]
